FAERS Safety Report 8322420-5 (Version None)
Quarter: 2012Q2

REPORT INFORMATION
  Report Type: 
  Country: None (occurrence: None)
  Receive Date: 20120426
  Receipt Date: 20120417
  Transmission Date: 20120825
  Serious: Yes (Other)
  Sender: FDA-Public Use
  Company Number: 2011HGS-003003

PATIENT
  Age: 48 Year
  Sex: Female
  Weight: 88.905 kg

DRUGS (17)
  1. TRICOR [Concomitant]
  2. ASPIRIN [Concomitant]
  3. CELLCEPT [Concomitant]
  4. ZIPRASIDONE HYDROCHLORIDE (GEODON) [Concomitant]
  5. BENLYSTA [Suspect]
     Indication: SYSTEMIC LUPUS ERYTHEMATOSUS
     Dosage: 1 IN 28 D, INTRAVENOUS DRIP
     Route: 041
     Dates: start: 20111201
  6. OMEPRAZOLE [Concomitant]
  7. TRAZODONE HCL [Concomitant]
  8. FOLIC ACID [Concomitant]
  9. HYDROCODONE BITARTRATE [Concomitant]
  10. KLONOPIN [Concomitant]
  11. SAVELLA [Concomitant]
  12. LOVAZA [Concomitant]
  13. VITAMIN B12 [Concomitant]
  14. ARAVA [Concomitant]
  15. PAXIL (PAROXETINE HDYROCHLORIDE) [Concomitant]
  16. ESTRADIOL [Concomitant]
  17. NEURONTIN [Concomitant]

REACTIONS (10)
  - PHARYNGEAL OEDEMA [None]
  - PSYCHOTIC DISORDER [None]
  - INFUSION RELATED REACTION [None]
  - DECREASED APPETITE [None]
  - THROAT IRRITATION [None]
  - NAUSEA [None]
  - GASTROOESOPHAGEAL REFLUX DISEASE [None]
  - MIGRAINE [None]
  - DIARRHOEA [None]
  - PYREXIA [None]
